FAERS Safety Report 9542436 (Version 6)
Quarter: 2014Q2

REPORT INFORMATION
  Report Type: Report from Study
  Country: US (occurrence: US)
  Receive Date: 20130923
  Receipt Date: 20140611
  Transmission Date: 20141212
  Serious: Yes (Other)
  Sender: FDA-Public Use
  Company Number: US-SANOFI-AVENTIS-2013SA056631

PATIENT
  Age: 59 Year
  Sex: Female
  Weight: 68 kg

DRUGS (13)
  1. AUBAGIO [Suspect]
     Indication: MULTIPLE SCLEROSIS
     Route: 048
     Dates: start: 201305
  2. AUBAGIO [Suspect]
     Indication: MULTIPLE SCLEROSIS
     Route: 048
     Dates: start: 201305
  3. AUBAGIO [Suspect]
     Indication: MULTIPLE SCLEROSIS
     Route: 065
     Dates: start: 201306
  4. DILTIAZEM [Concomitant]
     Indication: BLOOD PRESSURE
     Dosage: YEARS AGO
     Route: 065
  5. HYDROCHLOROTHIAZIDE WITH TRIAMTERENE [Concomitant]
     Indication: BLOOD PRESSURE
     Dosage: 37.5 / 25
     Route: 065
  6. ZETIA [Concomitant]
     Indication: HYPERCHOLESTEROLAEMIA
     Route: 065
  7. ZETIA [Concomitant]
     Indication: HEART VALVE STENOSIS
     Route: 065
  8. CRESTOR [Concomitant]
     Indication: HYPERCHOLESTEROLAEMIA
     Route: 065
  9. CRESTOR [Concomitant]
     Indication: HEART VALVE STENOSIS
     Route: 065
  10. OXYBUTYNIN CHLORIDE [Concomitant]
     Indication: BLADDER DISORDER
     Route: 065
  11. COENZYME Q10 [Concomitant]
  12. CALCIUM [Concomitant]
  13. VITAMIN D [Concomitant]

REACTIONS (7)
  - Thyroid neoplasm [Not Recovered/Not Resolved]
  - Bladder disorder [Not Recovered/Not Resolved]
  - Flushing [Recovered/Resolved]
  - Pyrexia [Recovered/Resolved]
  - Muscular weakness [Not Recovered/Not Resolved]
  - Diarrhoea [Not Recovered/Not Resolved]
  - Alopecia [Not Recovered/Not Resolved]
